FAERS Safety Report 6257392-0 (Version None)
Quarter: 2009Q3

REPORT INFORMATION
  Report Type: 
  Country: None (occurrence: None)
  Receive Date: 20090706
  Receipt Date: 20090630
  Transmission Date: 20100115
  Serious: Yes (Other)
  Sender: FDA-Public Use
  Company Number: US-MERCK-0906USA03665

PATIENT
  Age: 13 Year
  Sex: Male

DRUGS (8)
  1. SINGULAIR [Suspect]
     Indication: ASTHMA
     Route: 048
     Dates: start: 20060901, end: 20080901
  2. SINGULAIR [Suspect]
     Route: 048
     Dates: start: 20080101, end: 20090210
  3. SINGULAIR [Suspect]
     Indication: HYPERSENSITIVITY
     Route: 048
     Dates: start: 20060901, end: 20080901
  4. SINGULAIR [Suspect]
     Route: 048
     Dates: start: 20080101, end: 20090210
  5. PROVENTIL-HFA [Concomitant]
     Route: 065
  6. ZYRTEC [Concomitant]
     Route: 065
  7. SINGULAIR [Suspect]
     Route: 048
     Dates: start: 20090211, end: 20090527
  8. SINGULAIR [Suspect]
     Route: 048
     Dates: start: 20090211, end: 20090527

REACTIONS (7)
  - ADVERSE EVENT [None]
  - CRYING [None]
  - DEPRESSION [None]
  - EDUCATIONAL PROBLEM [None]
  - OVERDOSE [None]
  - PERSONALITY CHANGE [None]
  - SUICIDAL IDEATION [None]
